FAERS Safety Report 15386598 (Version 1)
Quarter: 2018Q3

REPORT INFORMATION
  Report Type: Report from Study
  Country: FR (occurrence: FR)
  Receive Date: 20180914
  Receipt Date: 20180914
  Transmission Date: 20181010
  Serious: Yes (Death, Hospitalization, Other)
  Sender: FDA-Public Use
  Company Number: FR-SA-2016SA163921

PATIENT
  Age: 76 Year
  Sex: Male
  Weight: 65 kg

DRUGS (9)
  1. AFLIBERCEPT [Suspect]
     Active Substance: AFLIBERCEPT
     Indication: COLORECTAL CANCER METASTATIC
     Dosage: 250 MG, QOW
     Route: 042
     Dates: start: 20160315, end: 20160315
  2. IRINOTECAN [Suspect]
     Active Substance: IRINOTECAN
     Dosage: 180 MG/M2,QCY
     Route: 042
     Dates: start: 20160113, end: 20160113
  3. FLUOROURACIL. [Suspect]
     Active Substance: FLUOROURACIL
     Dosage: 400 MG/M2,QCY
     Route: 040
     Dates: start: 20160113, end: 20160113
  4. IRINOTECAN [Suspect]
     Active Substance: IRINOTECAN
     Indication: COLORECTAL CANCER METASTATIC
     Dosage: 280 MG,QCY
     Route: 042
     Dates: start: 20160523, end: 20160523
  5. FLUOROURACIL. [Suspect]
     Active Substance: FLUOROURACIL
     Dosage: 2400 MG/M2,QCY
     Route: 041
     Dates: start: 20160113, end: 20160113
  6. FOLINIC ACID [Suspect]
     Active Substance: LEUCOVORIN
     Indication: COLORECTAL CANCER METASTATIC
     Dosage: 360 MG,QCY
     Route: 042
     Dates: start: 20160523, end: 20160523
  7. FOLINIC ACID [Suspect]
     Active Substance: LEUCOVORIN
     Dosage: 400 MG/M2,QCY
     Route: 042
     Dates: start: 20160113, end: 20160113
  8. FLUOROURACIL. [Suspect]
     Active Substance: FLUOROURACIL
     Indication: COLORECTAL CANCER METASTATIC
     Dosage: 4000 MG,QCY
     Route: 041
     Dates: start: 20160523, end: 20160523
  9. AFLIBERCEPT [Suspect]
     Active Substance: AFLIBERCEPT
     Dosage: 250 MG, QOW
     Route: 042
     Dates: start: 20160113, end: 20160113

REACTIONS (2)
  - Cholangitis [Recovered/Resolved]
  - Sepsis [Fatal]

NARRATIVE: CASE EVENT DATE: 20160503
